FAERS Safety Report 4826471-4 (Version None)
Quarter: 2005Q4

REPORT INFORMATION
  Report Type: 
  Country: None (occurrence: None)
  Receive Date: 20051111
  Receipt Date: 20041119
  Transmission Date: 20060501
  Serious: Yes (Death)
  Sender: FDA-Public Use
  Company Number: BR-BOEHRINGER INGELHEIM PHARMACEUTICALS, INC.-2005-BP-19813PF

PATIENT
  Sex: Male

DRUGS (5)
  1. PRAMIPEXOLE [Suspect]
     Indication: PARKINSON'S DISEASE
     Route: 048
     Dates: start: 20020514, end: 20040805
  2. GEODON [Concomitant]
     Route: 048
     Dates: start: 20030801
  3. PROLOPA [Concomitant]
     Route: 048
     Dates: start: 19641101
  4. HYDROCHLORIDE [Concomitant]
  5. LEVODOPA [Concomitant]

REACTIONS (1)
  - DEATH [None]
